FAERS Safety Report 8182831-8 (Version None)
Quarter: 2012Q1

REPORT INFORMATION
  Report Type: 
  Country: None (occurrence: None)
  Receive Date: 20120126
  Receipt Date: 20111013
  Transmission Date: 20120608
  Serious: Yes (Hospitalization)
  Sender: FDA-Public Use
  Company Number: PHEH2011US06251

PATIENT
  Age: 75 Year
  Sex: Male

DRUGS (3)
  1. AFINITOR [Suspect]
     Indication: MALIGNANT NEOPLASM OF ISLETS OF LANGERHANS
     Dosage: 10 MG, DAILY, ORAL
     Route: 048
     Dates: start: 20110812, end: 20111007
  2. AFINITOR [Suspect]
     Indication: RENAL CELL CARCINOMA
     Dosage: 10 MG, DAILY, ORAL
     Route: 048
     Dates: start: 20110812, end: 20111007
  3. CHEMOTHERAPEUTICS [Concomitant]

REACTIONS (1)
  - RENAL FAILURE [None]
